FAERS Safety Report 23723632 (Version 1)
Quarter: 2024Q2

REPORT INFORMATION
  Report Type: Spontaneous
  Country: TR (occurrence: TR)
  Receive Date: 20240409
  Receipt Date: 20240409
  Transmission Date: 20240716
  Serious: Yes (Other)
  Sender: FDA-Public Use
  Company Number: TR-Harrow Eye-2155375

PATIENT
  Sex: Male

DRUGS (3)
  1. NEVANAC [Suspect]
     Active Substance: NEPAFENAC
     Indication: Central serous chorioretinopathy
  2. AZOPT [Suspect]
     Active Substance: BRINZOLAMIDE
  3. ACETAZOLAMIDE [Suspect]
     Active Substance: ACETAZOLAMIDE

REACTIONS (5)
  - Facial paralysis [Unknown]
  - Bone marrow disorder [Unknown]
  - Visual acuity reduced [Unknown]
  - T-cell type acute leukaemia [Unknown]
  - Macular oedema [Unknown]
